FAERS Safety Report 13302302 (Version 1)
Quarter: 2017Q1

REPORT INFORMATION
  Report Type: Spontaneous
  Country: CN (occurrence: CN)
  Receive Date: 20170307
  Receipt Date: 20170307
  Transmission Date: 20170428
  Serious: Yes (Death)
  Sender: FDA-Public Use
  Company Number: CN-HQ SPECIALTY-CN-2017INT000054

PATIENT

DRUGS (5)
  1. CISPLATIN. [Suspect]
     Active Substance: CISPLATIN
     Indication: OESOPHAGEAL SQUAMOUS CELL CARCINOMA
     Dosage: 75 MG/M2, DAY 1 EVERY 3 WEEKS
     Route: 042
  2. PACLITAXEL. [Suspect]
     Active Substance: PACLITAXEL
     Indication: OESOPHAGEAL SQUAMOUS CELL CARCINOMA
     Dosage: 175 MG/M2, OVER 3 HOURS ON DAY 1
     Route: 042
  3. DEXAMETHASONE. [Concomitant]
     Active Substance: DEXAMETHASONE
     Indication: PREMEDICATION
     Dosage: 10 MG, AT 12 AND 6 HOURS BEFORE INFUSION
     Route: 048
  4. H2 BLOCKER                         /00397401/ [Concomitant]
     Indication: PROPHYLAXIS
     Dosage: UNK, WITHIN 60 MINUTES BEFORE INFUSION
     Route: 042
  5. DIPHENHYDRAMINE. [Concomitant]
     Active Substance: DIPHENHYDRAMINE
     Indication: PROPHYLAXIS
     Dosage: UNK, WITHIN 60 MINUTES BEFORE INFUSION
     Route: 030

REACTIONS (2)
  - Neutropenia [Fatal]
  - Pneumonia [Fatal]
